APPROVED DRUG PRODUCT: GLYBURIDE
Active Ingredient: GLYBURIDE
Strength: 5MG
Dosage Form/Route: TABLET;ORAL
Application: A077537 | Product #003
Applicant: AUROBINDO PHARMA LTD
Approved: Oct 18, 2007 | RLD: No | RS: No | Type: DISCN